FAERS Safety Report 21557781 (Version 2)
Quarter: 2022Q4

REPORT INFORMATION
  Report Type: Spontaneous
  Country: SI (occurrence: SI)
  Receive Date: 20221106
  Receipt Date: 20221116
  Transmission Date: 20230113
  Serious: No
  Sender: FDA-Public Use
  Company Number: SI-BAYER-2022P020271

PATIENT
  Age: 52 Year
  Sex: Male

DRUGS (14)
  1. VERICIGUAT HYDROCHLORIDE [Suspect]
     Active Substance: VERICIGUAT HYDROCHLORIDE
     Indication: Cardiac failure
     Dosage: 2.5 MG
  2. XARELTO [Concomitant]
     Active Substance: RIVAROXABAN
     Dosage: 20 MG, QD
  3. BISOPROLOL [Concomitant]
     Active Substance: BISOPROLOL
     Dosage: 5 MG 2X1, }5 YEARS
  4. SPIRONOLACTONE [Concomitant]
     Active Substance: SPIRONOLACTONE
     Dosage: 50 MG 1X1, }5 YEARS
  5. METFORMIN [Concomitant]
     Active Substance: METFORMIN HYDROCHLORIDE
     Dosage: UNK
  6. SACUBITRIL [Concomitant]
     Active Substance: SACUBITRIL
     Dosage: UNK
  7. VALSARTAN [Concomitant]
     Active Substance: VALSARTAN
     Dosage: UNK
  8. IVABRADINE [Concomitant]
     Active Substance: IVABRADINE
     Dosage: 5 MG 2X1
  9. THEOPHYLLINE [Concomitant]
     Active Substance: THEOPHYLLINE
     Dosage: 350 MG 2X1
  10. PANTOPRAZOLE [Concomitant]
     Active Substance: PANTOPRAZOLE
     Dosage: 20 MG, QD
  11. PROMAZINE [Concomitant]
     Active Substance: PROMAZINE
     Dosage: 50 MG, QD
  12. ROSUVASTATIN [Concomitant]
     Active Substance: ROSUVASTATIN
     Dosage: 20 MG, QD
  13. INSULIN NOS [Concomitant]
     Active Substance: INSULIN NOS
     Dosage: UNK
     Route: 058
  14. FUROSEMIDE [Concomitant]
     Active Substance: FUROSEMIDE
     Dosage: 40 MG, QD

REACTIONS (2)
  - Dyspnoea [Recovering/Resolving]
  - Fatigue [Unknown]
